FAERS Safety Report 9350865 (Version 3)
Quarter: 2013Q4

REPORT INFORMATION
  Report Type: Spontaneous
  Country: US (occurrence: US)
  Receive Date: 20130617
  Receipt Date: 20131009
  Transmission Date: 20140711
  Serious: Yes (Hospitalization, Other)
  Sender: FDA-Public Use
  Company Number: US-ROCHE-1035692

PATIENT
  Age: 31 Year
  Sex: Female
  Weight: 49.94 kg

DRUGS (2)
  1. ACCUTANE [Suspect]
     Indication: ACNE
     Route: 065
     Dates: start: 199309, end: 199312
  2. ACCUTANE [Suspect]
     Route: 065
     Dates: start: 200209, end: 200306

REACTIONS (14)
  - Intestinal obstruction [Unknown]
  - Crohn^s disease [Unknown]
  - Colitis [Unknown]
  - Anxiety [Unknown]
  - Inflammatory bowel disease [Unknown]
  - Anal fistula [Unknown]
  - Deep vein thrombosis [Unknown]
  - Pulmonary embolism [Unknown]
  - Irritable bowel syndrome [Unknown]
  - Lip dry [Unknown]
  - Blood triglycerides increased [Unknown]
  - Blood cholesterol increased [Unknown]
  - Eczema [Unknown]
  - Herpes simplex [Unknown]
